FAERS Safety Report 8337266-1 (Version None)
Quarter: 2012Q2

REPORT INFORMATION
  Report Type: 
  Country: None (occurrence: None)
  Receive Date: 20120504
  Receipt Date: 20120424
  Transmission Date: 20120825
  Serious: Yes (Other)
  Sender: FDA-Public Use
  Company Number: CA-JNJFOC-20120201835

PATIENT
  Sex: Female
  Weight: 48.3 kg

DRUGS (6)
  1. FERROMAX [Concomitant]
     Route: 065
  2. REMICADE [Suspect]
     Indication: CROHN'S DISEASE
     Dosage: 8TH INFUSION ON 20-DEC (UNSPECIFIED YEAR)
     Route: 042
  3. REMICADE [Suspect]
     Route: 042
     Dates: start: 20110210
  4. REMICADE [Suspect]
     Dosage: 11TH INFUSION
     Route: 042
     Dates: start: 20120424
  5. PREDNISONE TAB [Concomitant]
     Route: 065
  6. VITAMIN B-12 INJECTIONS [Concomitant]
     Route: 065

REACTIONS (2)
  - INTESTINAL HAEMORRHAGE [None]
  - HAEMOGLOBIN DECREASED [None]
